FAERS Safety Report 6478003-5 (Version None)
Quarter: 2009Q4

REPORT INFORMATION
  Report Type: 
  Country: None (occurrence: None)
  Receive Date: 20091207
  Receipt Date: 20091126
  Transmission Date: 20100525
  Serious: Yes (Hospitalization)
  Sender: FDA-Public Use
  Company Number: B0610044A

PATIENT
  Sex: Male

DRUGS (1)
  1. ZINNAT [Suspect]
     Indication: IMPETIGO
     Dosage: 250MG TWICE PER DAY
     Route: 048
     Dates: start: 20091005, end: 20091015

REACTIONS (4)
  - CUTANEOUS VASCULITIS [None]
  - LEUKOCYTOCLASTIC VASCULITIS [None]
  - PYREXIA [None]
  - SKIN LESION [None]
